FAERS Safety Report 4828299-8 (Version None)
Quarter: 2005Q4

REPORT INFORMATION
  Report Type: 
  Country: None (occurrence: None)
  Receive Date: 20051114
  Receipt Date: 20051114
  Transmission Date: 20060501
  Serious: Yes (Death, Life-Threatening, Hospitalization)
  Sender: FDA-Public Use
  Company Number: None

PATIENT
  Age: 83 Year
  Sex: Male
  Weight: 104.3273 kg

DRUGS (17)
  1. NAMENDA [Suspect]
     Indication: CEREBROVASCULAR ACCIDENT
     Dosage: 1 DOSE,  5 MG
     Dates: start: 20051101
  2. NAMENDA [Suspect]
     Indication: VASCULAR DEMENTIA
     Dosage: 1 DOSE,  5 MG
     Dates: start: 20051101
  3. ATENOLOL [Concomitant]
  4. TERAZOSIN [Concomitant]
  5. REMINYL [Concomitant]
  6. ASPIRIN [Concomitant]
  7. POTASSIUM CHLORIDE [Concomitant]
  8. FELODIPINE [Concomitant]
  9. HYDRALAZINE [Concomitant]
  10. TRIAMTERENE AND HYDROCHLOROTHIAZIDE [Concomitant]
  11. FOLIC ACID [Concomitant]
  12. COSOPT [Concomitant]
  13. TRAVATAN [Concomitant]
  14. GLYBURIDE [Concomitant]
  15. TETRACYCLINE [Concomitant]
  16. LISINOPRIL [Concomitant]
  17. CLONIDINE [Concomitant]

REACTIONS (5)
  - BRAIN DEATH [None]
  - BRAIN HYPOXIA [None]
  - CARDIAC ARREST [None]
  - CONTUSION [None]
  - FALL [None]
